FAERS Safety Report 8916481 (Version 4)
Quarter: 2013Q1

REPORT INFORMATION
  Report Type: Report from Study
  Country: US (occurrence: US)
  Receive Date: 20121120
  Receipt Date: 20130122
  Transmission Date: 20140127
  Serious: Yes (Hospitalization)
  Sender: FDA-Public Use
  Company Number: US-ROCHE-1097390

PATIENT
  Age: 57 Year
  Sex: Female
  Weight: 64 kg

DRUGS (15)
  1. PEG-INTERFERON ALFA 2A [Suspect]
     Indication: CHRONIC HEPATITIS C
     Dosage: DATE OF LAST DOSE PRIOR TO SAE: 21/JUL/2012, DATE OF THE MOST RECENT DOSE PRIOR TO SAE :29/SEP/2012
     Route: 058
     Dates: start: 20120623
  2. RIBAVIRIN [Suspect]
     Indication: CHRONIC HEPATITIS C
     Dosage: DATE OF LAST DOSE PRIOR TO SAE: 23/JUL/2012, DATE OF THE MOST RECENT DOSE PRIOR TO SAE : 02/OCT/2012
     Route: 048
     Dates: start: 20120623
  3. RIBAVIRIN [Suspect]
     Route: 048
     Dates: start: 20120720
  4. BOCEPREVIR [Suspect]
     Indication: CHRONIC HEPATITIS C
     Dosage: DATE OF LAST DOSE PRIOR TO SAE: 23/JUL/2012, DATE OF THE MOST RECENT DOSE PRIOR TO SAE :02/OCT/2012
     Route: 048
     Dates: start: 20120721
  5. TOPAMAX [Concomitant]
  6. AMBIEN [Concomitant]
  7. ABILIFY [Concomitant]
  8. LEXAPRO [Concomitant]
  9. NEURONTIN [Concomitant]
  10. VISTARIL [Concomitant]
     Dosage: 150 MG
     Route: 065
  11. LAMICTAL [Concomitant]
  12. ATIVAN [Concomitant]
     Dosage: 3 MG
     Route: 065
  13. MOBIC [Concomitant]
  14. IMITREX [Concomitant]
  15. RESTORIL [Concomitant]

REACTIONS (3)
  - Anaemia [Not Recovered/Not Resolved]
  - Hypotension [Unknown]
  - Dizziness [Unknown]
